FAERS Safety Report 22056246 (Version 1)
Quarter: 2023Q1

REPORT INFORMATION
  Report Type: Report from Study
  Country: US (occurrence: US)
  Receive Date: 20230302
  Receipt Date: 20230302
  Transmission Date: 20230417
  Serious: Yes (Hospitalization)
  Sender: FDA-Public Use
  Company Number: US-REGENERON PHARMACEUTICALS, INC.-2022-164879

PATIENT
  Age: 52 Year
  Sex: Female

DRUGS (22)
  1. CEMIPLIMAB [Suspect]
     Active Substance: CEMIPLIMAB
     Indication: Ovarian cancer
     Dosage: 350 MG, DLC8A
     Route: 042
     Dates: start: 20230131, end: 20230131
  2. CEMIPLIMAB [Suspect]
     Active Substance: CEMIPLIMAB
     Dosage: 350 MG, DLC8A
     Route: 042
     Dates: start: 20230223, end: 20230223
  3. OXYCODONE [Concomitant]
     Active Substance: OXYCODONE
     Indication: Dyspnoea
     Dosage: 5-10MG, Q6H
     Route: 048
     Dates: start: 20221121
  4. OXYCODONE [Concomitant]
     Active Substance: OXYCODONE
     Indication: Back pain
     Dosage: 10 MG, QD
     Route: 048
     Dates: start: 20160817
  5. FOSFOMYCIN [Concomitant]
     Active Substance: FOSFOMYCIN
     Indication: Urinary tract infection
     Dosage: 3 G, X1 DOSE
     Route: 048
     Dates: start: 20221227, end: 20221227
  6. PYRIDIUM [Concomitant]
     Active Substance: PHENAZOPYRIDINE
     Indication: Urinary tract infection
     Dosage: 200 MG, BID
     Route: 048
     Dates: start: 20221227, end: 20221229
  7. SENOKOT [Concomitant]
     Active Substance: SENNOSIDES
     Indication: Constipation
     Dosage: 15 MG, EACH NIGHT OR NOCT
     Route: 048
     Dates: start: 20230103
  8. COLACE [Concomitant]
     Active Substance: DOCUSATE SODIUM
     Indication: Constipation
     Dosage: 100 MG, QD
     Route: 048
     Dates: start: 20230103
  9. MIRALAX [Concomitant]
     Active Substance: POLYETHYLENE GLYCOL 3350
     Indication: Constipation
     Dosage: 17 G, QD
     Route: 048
     Dates: start: 20221227
  10. DULCOLAX (BISACODYL) [Concomitant]
     Active Substance: BISACODYL
     Indication: Constipation
     Dosage: 5 MG, AS NECESSARY
     Route: 048
     Dates: start: 20230103
  11. OMEPRAZOLE [Concomitant]
     Active Substance: OMEPRAZOLE
     Indication: Gastrooesophageal reflux disease
     Dosage: 20 MG, QD
     Route: 048
     Dates: start: 20220426
  12. BENADRYL [Concomitant]
     Active Substance: DIPHENHYDRAMINE HYDROCHLORIDE
     Indication: Pruritus
     Dosage: 25 MG, AS NECESSARY
     Route: 048
     Dates: start: 20230104, end: 20230104
  13. APIXABAN [Concomitant]
     Active Substance: APIXABAN
     Indication: Deep vein thrombosis
     Dosage: 2.5 MG, BID
     Route: 048
     Dates: start: 20220516
  14. LORAZEPAM [Concomitant]
     Active Substance: LORAZEPAM
     Indication: Anxiety
     Dosage: 0.5 MG, AS NECESSARY
     Route: 048
     Dates: start: 20160815, end: 20230106
  15. CIPROFLOXACIN [Concomitant]
     Active Substance: CIPROFLOXACIN
     Indication: Pyelonephritis
     Dosage: 500 MG, BID
     Route: 048
     Dates: start: 20230131, end: 20230214
  16. SINGULAIR [Concomitant]
     Active Substance: MONTELUKAST SODIUM
     Indication: Premedication
     Dosage: 10 MG, NIGHTLY AT BEDTIME. TAKE FOR 2 NIGHTS PRIOR AND MORNING OF INFUSIONS
     Route: 048
     Dates: start: 20221220, end: 20230117
  17. NARCAN [Concomitant]
     Active Substance: NALOXONE HYDROCHLORIDE
     Indication: Prophylaxis
     Dosage: 4 MG, AS NECESSARY
     Route: 045
     Dates: start: 20230104
  18. ZYPREXA [Concomitant]
     Active Substance: OLANZAPINE
     Indication: Nausea
     Dosage: 2.5 MG, TID
     Route: 048
     Dates: start: 20230106, end: 20230124
  19. BENADRYL [Concomitant]
     Active Substance: DIPHENHYDRAMINE HYDROCHLORIDE
     Indication: Prophylaxis
     Dosage: 25 MG, AS NECESSARY
     Route: 048
     Dates: start: 20221227
  20. ZOFRAN [Concomitant]
     Active Substance: ONDANSETRON HYDROCHLORIDE
     Indication: Nausea
     Dosage: 4 MG, AS NECESSARY
     Route: 048
     Dates: start: 20230223
  21. XTAMPZA ER [Concomitant]
     Active Substance: OXYCODONE
     Indication: Back pain
     Dosage: 27 MG, Q12H
     Route: 048
     Dates: start: 20221216, end: 20230118
  22. BACTRIM DS [Concomitant]
     Active Substance: SULFAMETHOXAZOLE\TRIMETHOPRIM
     Indication: Pyelonephritis
     Dosage: 160 MG, BID
     Route: 048
     Dates: start: 20230121, end: 20230201

REACTIONS (11)
  - Abdominal pain [Recovered/Resolved]
  - Cytokine release syndrome [Recovered/Resolved]
  - Hypoxia [Not Recovered/Not Resolved]
  - Abdominal pain [Recovered/Resolved]
  - Central pain syndrome [Recovered/Resolved]
  - Cytokine release syndrome [Recovered/Resolved]
  - Central pain syndrome [Recovered/Resolved]
  - Central pain syndrome [Recovered/Resolved]
  - Infusion related reaction [Recovered/Resolved]
  - Central pain syndrome [Recovered/Resolved]
  - Infusion related reaction [Recovered/Resolved]

NARRATIVE: CASE EVENT DATE: 20221227
